FAERS Safety Report 8406990-4 (Version None)
Quarter: 2012Q2

REPORT INFORMATION
  Report Type: 
  Country: None (occurrence: None)
  Receive Date: 20120604
  Receipt Date: 20120529
  Transmission Date: 20120825
  Serious: Yes (Other)
  Sender: FDA-Public Use
  Company Number: BR-PFIZER INC-2012059611

PATIENT
  Age: 49 Year
  Sex: Female

DRUGS (8)
  1. LYRICA [Suspect]
     Dosage: 225MG, DAILY
  2. FLUCONAZOLE [Concomitant]
     Dosage: UNK
  3. LYRICA [Suspect]
     Indication: FIBROMYALGIA
     Dosage: 150 MG, 2X/DAY
  4. LYRICA [Suspect]
     Indication: PAIN
     Dosage: 75 MG, 2X/DAY
  5. REMICADE [Concomitant]
     Indication: FIBROMYALGIA
  6. ARCOXIA [Concomitant]
     Dosage: UNK, WEEKLY
  7. LYRICA [Suspect]
     Indication: SPONDYLOARTHROPATHY
     Dosage: 150 MG, DAILY
     Route: 048
     Dates: start: 20111221
  8. REMICADE [Concomitant]
     Indication: SPONDYLOARTHROPATHY
     Dosage: UNK

REACTIONS (3)
  - URINARY RETENTION [None]
  - VAGINAL INFECTION [None]
  - DRUG INEFFECTIVE [None]
